FAERS Safety Report 18722598 (Version 1)
Quarter: 2021Q1

REPORT INFORMATION
  Report Type: Spontaneous
  Country: US (occurrence: US)
  Receive Date: 20210111
  Receipt Date: 20210111
  Transmission Date: 20210419
  Serious: No
  Sender: FDA-Public Use
  Company Number: US-009507513-2101USA001217

PATIENT
  Age: 80 Year
  Sex: Female

DRUGS (5)
  1. DROXIDOPA [Concomitant]
     Active Substance: DROXIDOPA
  2. FLUDROCORTISONE [Concomitant]
     Active Substance: FLUDROCORTISONE
  3. COZAAR [Suspect]
     Active Substance: LOSARTAN POTASSIUM
     Indication: SUPINE HYPERTENSION
     Dosage: NIGHTTIME
     Route: 048
  4. ATOMOXETINE HYDROCHLORIDE. [Concomitant]
     Active Substance: ATOMOXETINE HYDROCHLORIDE
  5. MIDODRINE HYDROCHLORIDE. [Concomitant]
     Active Substance: MIDODRINE HYDROCHLORIDE

REACTIONS (1)
  - Product use in unapproved indication [Unknown]
